FAERS Safety Report 18045596 (Version 3)
Quarter: 2020Q4

REPORT INFORMATION
  Report Type: Spontaneous
  Country: DE (occurrence: JP)
  Receive Date: 20200720
  Receipt Date: 20201111
  Transmission Date: 20210113
  Serious: Yes (Hospitalization, Disabling)
  Sender: FDA-Public Use
  Company Number: JP-ELI_LILLY_AND_COMPANY-JP202007005541

PATIENT
  Age: 55 Year
  Sex: Female

DRUGS (6)
  1. DEXART [Concomitant]
     Active Substance: DEXAMETHASONE SODIUM PHOSPHATE
     Indication: PREMEDICATION
     Dosage: 6.6 MG, WEEKLY (1/W)
     Route: 042
     Dates: start: 20200618, end: 20200702
  2. TAKECAB [Concomitant]
     Active Substance: VONOPRAZAN FUMARATE
     Indication: PRODUCT USED FOR UNKNOWN INDICATION
     Dosage: 10 MG, UNKNOWN
  3. MINOCYCLINE ALPHARMA [Concomitant]
     Indication: SKIN DISORDER PROPHYLAXIS
     Dosage: UNK
     Route: 048
     Dates: start: 20200618
  4. GASTER [Suspect]
     Active Substance: FAMOTIDINE
     Indication: PREMEDICATION
     Dosage: 20 MG, WEEKLY (1/W)
     Route: 042
     Dates: start: 20200618, end: 20200702
  5. ERBITUX [Suspect]
     Active Substance: CETUXIMAB
     Indication: RECTAL CANCER
     Dosage: 450 MG, UNKNOWN
     Route: 041
     Dates: start: 20200618, end: 20200713
  6. POLARAMINE [Concomitant]
     Active Substance: DEXCHLORPHENIRAMINE MALEATE
     Indication: PREMEDICATION
     Dosage: 5 MG, WEEKLY (1/W)
     Route: 042
     Dates: start: 20200618, end: 20200702

REACTIONS (1)
  - Rhabdomyolysis [Recovering/Resolving]

NARRATIVE: CASE EVENT DATE: 20200709
